APPROVED DRUG PRODUCT: ELOCON
Active Ingredient: MOMETASONE FUROATE
Strength: 0.1%
Dosage Form/Route: OINTMENT;TOPICAL
Application: N019543 | Product #001
Applicant: ORGANON LLC A SUB OF ORGANON AND CO
Approved: Apr 30, 1987 | RLD: Yes | RS: No | Type: DISCN